FAERS Safety Report 17647994 (Version 1)
Quarter: 2020Q2

REPORT INFORMATION
  Report Type: Spontaneous
  Country: US (occurrence: US)
  Receive Date: 20200408
  Receipt Date: 20200408
  Transmission Date: 20200713
  Serious: Yes (Other)
  Sender: FDA-Public Use
  Company Number: NVSC2020US095081

PATIENT

DRUGS (2)
  1. IMATINIB MESILATE [Suspect]
     Active Substance: IMATINIB MESYLATE
     Dosage: 200 MG, QD
     Route: 048
  2. IMATINIB MESILATE [Suspect]
     Active Substance: IMATINIB MESYLATE
     Indication: METASTATIC MALIGNANT MELANOMA
     Dosage: 400 MG, BID IN BETWEEN MEALS
     Route: 048

REACTIONS (2)
  - Hyponatraemia [Unknown]
  - Product use in unapproved indication [Unknown]
